FAERS Safety Report 4879682-6 (Version None)
Quarter: 2006Q1

REPORT INFORMATION
  Report Type: 
  Country: None (occurrence: None)
  Receive Date: 20060113
  Receipt Date: 20060109
  Transmission Date: 20060701
  Serious: Yes (Death, Hospitalization, Other)
  Sender: FDA-Public Use
  Company Number: DE-BRISTOL-MYERS SQUIBB COMPANY-13240700

PATIENT
  Age: 62 Year
  Sex: Male

DRUGS (11)
  1. CISPLATIN [Suspect]
     Indication: SMALL CELL LUNG CANCER STAGE UNSPECIFIED
     Route: 042
     Dates: start: 20051217, end: 20051217
  2. TOPOTECAN HCL [Suspect]
     Indication: SMALL CELL LUNG CANCER STAGE UNSPECIFIED
     Route: 042
     Dates: start: 20051213, end: 20051217
  3. ASPIRIN [Concomitant]
     Dates: start: 19950101, end: 20051226
  4. PANTOPRAZOLE [Concomitant]
     Dates: start: 20051129, end: 20051226
  5. BETA-ACETYLDIGOXIN [Concomitant]
     Dates: start: 20051211, end: 20051226
  6. ACETYLCYSTEINE [Concomitant]
     Dates: start: 20051130, end: 20051206
  7. BUDESONIDE [Concomitant]
     Dates: start: 20051103, end: 20051226
  8. PROMETHAZINE HCL [Concomitant]
     Dates: start: 20051209, end: 20051225
  9. PREDNISONE [Concomitant]
     Dates: start: 20051129, end: 20051226
  10. BERODUAL [Concomitant]
     Dates: start: 20051212, end: 20051226
  11. VERAPAMIL HCL [Concomitant]
     Dates: start: 20051209, end: 20051225

REACTIONS (4)
  - ARRHYTHMIA [None]
  - LEUKOPENIA [None]
  - PNEUMONIA [None]
  - THROMBOCYTOPENIA [None]
